FAERS Safety Report 4459025-2 (Version None)
Quarter: 2004Q3

REPORT INFORMATION
  Report Type: 
  Country: None (occurrence: None)
  Receive Date: 20040927
  Receipt Date: 20040915
  Transmission Date: 20050211
  Serious: Yes (Death, Other)
  Sender: FDA-Public Use
  Company Number: IT-JNJFOC-20040904882

PATIENT

DRUGS (2)
  1. REOPRO [Suspect]
     Indication: ACUTE MYOCARDIAL INFARCTION
     Route: 042
  2. RETEPLASE [Suspect]
     Indication: ACUTE MYOCARDIAL INFARCTION
     Route: 042

REACTIONS (9)
  - CARDIAC FAILURE ACUTE [None]
  - CARDIOGENIC SHOCK [None]
  - DRUG INTERACTION [None]
  - GENERAL PHYSICAL HEALTH DETERIORATION [None]
  - HAEMOGLOBIN DECREASED [None]
  - HYPOTENSION [None]
  - INTERVENTRICULAR SEPTUM RUPTURE [None]
  - TACHYCARDIA [None]
  - UPPER GASTROINTESTINAL HAEMORRHAGE [None]
